FAERS Safety Report 6928037-9 (Version None)
Quarter: 2010Q3

REPORT INFORMATION
  Report Type: 
  Country: None (occurrence: None)
  Receive Date: 20100816
  Receipt Date: 20100816
  Transmission Date: 20110219
  Serious: Yes (Life-Threatening, Hospitalization, Other)
  Sender: FDA-Public Use
  Company Number: None

PATIENT
  Sex: Male
  Weight: 63.5036 kg

DRUGS (3)
  1. AMIODARONE HCL [Suspect]
     Indication: ATRIAL FIBRILLATION
     Dosage: 800 MG DAILY PO
     Dates: start: 20100201, end: 20100216
  2. AMIODARONE HCL [Suspect]
     Indication: POST PROCEDURAL COMPLICATION
     Dosage: 800 MG DAILY PO
     Dates: start: 20100201, end: 20100216
  3. AMIODARONE HCL [Suspect]
     Indication: PROPHYLAXIS
     Dosage: 200 MG DAILY PO
     Route: 048
     Dates: start: 20100217, end: 20100505

REACTIONS (6)
  - ABASIA [None]
  - COUGH [None]
  - DRUG DISPENSING ERROR [None]
  - DRUG TOXICITY [None]
  - DYSPNOEA [None]
  - PULMONARY FIBROSIS [None]
